FAERS Safety Report 9424375 (Version 1)
Quarter: 2013Q3

REPORT INFORMATION
  Report Type: Spontaneous
  Country: US (occurrence: US)
  Receive Date: 20130729
  Receipt Date: 20130729
  Transmission Date: 20140515
  Serious: Yes (Hospitalization)
  Sender: FDA-Public Use
  Company Number: US-MYLANLABS-2013S1015822

PATIENT
  Age: 78 Year
  Sex: Female
  Weight: 74 kg

DRUGS (17)
  1. OXALIPLATIN [Suspect]
     Indication: COLON CANCER STAGE II
     Dosage: 85MG/M2 DAY 1
     Route: 065
  2. FOLINIC ACID [Suspect]
     Indication: COLON CANCER STAGE II
     Dosage: 400MG/M2 DAY 1
     Route: 065
  3. FLUOROURACIL [Suspect]
     Indication: COLON CANCER STAGE II
     Dosage: 400MG/M2 ON DAY 1
     Route: 065
  4. FLUOROURACIL [Suspect]
     Indication: COLON CANCER STAGE II
     Dosage: 2400MG/M2 DAYS 1 AND 2 (46HOURS)
     Route: 050
  5. SERTRALINE [Concomitant]
     Dosage: 50MG DAILY
     Route: 048
  6. LISINOPRIL [Concomitant]
     Dosage: 40MG DAILY
     Route: 048
  7. ATENOLOL [Concomitant]
     Dosage: 50MG DAILY
     Route: 048
  8. MULTIVITAMIN [Concomitant]
     Dosage: ONE DAILY
     Route: 048
  9. FOLIC ACID [Concomitant]
     Dosage: 0.4MG DAILY
     Route: 048
  10. SIMVASTATIN [Concomitant]
     Dosage: 20MG DAILY
     Route: 048
  11. WARFARIN [Concomitant]
     Dosage: 1MG DAILY
     Route: 048
  12. MEGESTROL [Concomitant]
     Dosage: 800MG DAILY
     Route: 048
  13. FERROUS FUMARATE [Concomitant]
     Dosage: 324MG DAILY
     Route: 048
  14. ONDANSETRON [Concomitant]
     Indication: NAUSEA
     Dosage: AS NEEDED
     Route: 065
  15. ONDANSETRON [Concomitant]
     Indication: VOMITING
     Dosage: AS NEEDED
     Route: 065
  16. PROCHLORPERAZINE [Concomitant]
     Indication: NAUSEA
     Dosage: AS NEEDED
     Route: 065
  17. PROCHLORPERAZINE [Concomitant]
     Indication: VOMITING
     Dosage: AS NEEDED
     Route: 065

REACTIONS (4)
  - Organising pneumonia [Recovering/Resolving]
  - Neutropenia [Unknown]
  - Thrombocytopenia [Unknown]
  - Anaemia [Unknown]
